FAERS Safety Report 22859985 (Version 5)
Quarter: 2023Q4

REPORT INFORMATION
  Report Type: Report from Study
  Country: US (occurrence: US)
  Receive Date: 20230824
  Receipt Date: 20231203
  Transmission Date: 20240109
  Serious: No
  Sender: FDA-Public Use
  Company Number: US-002147023-NVSC2023US183605

PATIENT
  Sex: Female

DRUGS (1)
  1. KESIMPTA [Suspect]
     Active Substance: OFATUMUMAB
     Indication: Multiple sclerosis
     Dosage: 20 MG
     Route: 065

REACTIONS (5)
  - Paraesthesia [Unknown]
  - Insomnia [Unknown]
  - Injection site haemorrhage [Not Recovered/Not Resolved]
  - Injection site bruising [Unknown]
  - Injection site pain [Recovered/Resolved]
